FAERS Safety Report 11253363 (Version 1)
Quarter: 2015Q3

REPORT INFORMATION
  Report Type: Spontaneous
  Country: US (occurrence: US)
  Receive Date: 20150709
  Receipt Date: 20150709
  Transmission Date: 20151125
  Serious: No
  Sender: FDA-Public Use
  Company Number: US-TEVA-495994USA

PATIENT
  Sex: Female

DRUGS (2)
  1. ALPRAZOLAM. [Concomitant]
     Active Substance: ALPRAZOLAM
  2. TRAMADOL. [Suspect]
     Active Substance: TRAMADOL
     Indication: TINNITUS
     Dates: start: 20140716, end: 20140716

REACTIONS (2)
  - Vomiting [Unknown]
  - Nausea [Unknown]
